FAERS Safety Report 8604248-1 (Version None)
Quarter: 2012Q3

REPORT INFORMATION
  Report Type: 
  Country: None (occurrence: None)
  Receive Date: 20120807
  Receipt Date: 20120723
  Transmission Date: 20120928
  Serious: Yes (Other)
  Sender: FDA-Public Use
  Company Number: TPA2012A00617

PATIENT
  Age: 73 Year
  Sex: Male
  Weight: 104.7809 kg

DRUGS (4)
  1. METFFORMIN HYDROCHLORIDE [Concomitant]
  2. AMARYL [Concomitant]
  3. GLARGINE (INSULIN GLARGINE) [Concomitant]
  4. ACTOS [Suspect]
     Indication: TYPE 2 DIABETES MELLITUS
     Dates: start: 20050301, end: 20071201

REACTIONS (2)
  - RENAL CANCER [None]
  - BLADDER CANCER [None]
